FAERS Safety Report 18581863 (Version 5)
Quarter: 2023Q2

REPORT INFORMATION
  Report Type: Spontaneous
  Country: US (occurrence: US)
  Receive Date: 20201204
  Receipt Date: 20230622
  Transmission Date: 20230722
  Serious: Yes (Death, Hospitalization, Other)
  Sender: FDA-Public Use
  Company Number: US-PFIZER INC-2020478853

PATIENT
  Age: 84 Year
  Sex: Male
  Weight: 71.67 kg

DRUGS (3)
  1. VYNDAMAX [Suspect]
     Active Substance: TAFAMIDIS
     Indication: Dyspnoea
     Dosage: 61 MG, 1X/DAY (AT NIGHT)
     Route: 048
  2. VYNDAMAX [Suspect]
     Active Substance: TAFAMIDIS
     Indication: Mobility decreased
     Dosage: 61 MG, 1X/DAY (ONE CAPSULE BY MOUTH DAILY)
     Route: 048
  3. VYNDAMAX [Suspect]
     Active Substance: TAFAMIDIS
     Indication: Cardiac amyloidosis
     Dosage: 61 MG, 1X/DAY (ONE CAPSULE BY MOUTH DAILY)
     Route: 048

REACTIONS (10)
  - Acute kidney injury [Fatal]
  - Pneumonia [Unknown]
  - Enteritis [Unknown]
  - Neoplasm progression [Unknown]
  - Dehydration [Unknown]
  - Blood calcium increased [Unknown]
  - Urine sodium decreased [Unknown]
  - Blood potassium increased [Unknown]
  - Product quality issue [Unknown]
  - Poor quality product administered [Unknown]

NARRATIVE: CASE EVENT DATE: 20230525
